FAERS Safety Report 6249639-1 (Version None)
Quarter: 2009Q2

REPORT INFORMATION
  Report Type: 
  Country: None (occurrence: None)
  Receive Date: 20090625
  Receipt Date: 20090625
  Transmission Date: 20091009
  Serious: Yes (Hospitalization)
  Sender: FDA-Public Use
  Company Number: None

PATIENT
  Age: 75 Year
  Sex: Male

DRUGS (1)
  1. LEVITRA [Suspect]
     Dosage: LEVITRA 10 MG PRN PO
     Route: 048
     Dates: start: 20080725, end: 20080725

REACTIONS (4)
  - DIZZINESS [None]
  - PALPITATIONS [None]
  - PRESYNCOPE [None]
  - TACHYCARDIA [None]
